FAERS Safety Report 5810623-0 (Version None)
Quarter: 2008Q3

REPORT INFORMATION
  Report Type: 
  Country: None (occurrence: None)
  Receive Date: 20080710
  Receipt Date: 20080701
  Transmission Date: 20090109
  Serious: Yes (Life-Threatening)
  Sender: FDA-Public Use
  Company Number: 163-C5013-08040107

PATIENT
  Age: 77 Year
  Sex: Male
  Weight: 98.4 kg

DRUGS (7)
  1. CC-5013 (LENALIDOMIDE) (15 MILLIGRAM, CAPSULES) [Suspect]
     Indication: MULTIPLE MYELOMA
     Dosage: 15 MG, DAILY 1-21, ORAL
     Route: 048
     Dates: start: 20051130, end: 20080116
  2. AREDIA [Concomitant]
  3. PEPCID [Concomitant]
  4. ARANESP [Concomitant]
  5. PLAVIX [Concomitant]
  6. ADALAT [Concomitant]
  7. LIPITOR [Concomitant]

REACTIONS (2)
  - DISEASE PROGRESSION [None]
  - MYELODYSPLASTIC SYNDROME [None]
